FAERS Safety Report 9698937 (Version 2)
Quarter: 2013Q4

REPORT INFORMATION
  Report Type: Spontaneous
  Country: SE (occurrence: SE)
  Receive Date: 20131120
  Receipt Date: 20131120
  Transmission Date: 20140711
  Serious: Yes (Death, Other)
  Sender: FDA-Public Use
  Company Number: SE-ABBVIE-13P-150-1165387-00

PATIENT
  Sex: Female

DRUGS (1)
  1. CHIROCAINE [Suspect]
     Indication: POSTOPERATIVE ANALGESIA
     Dosage: 25 MG/HOUR (600 MG/24HOURS) + BOLUS DOSES OF UNKNOWN DOSE
     Route: 008
     Dates: start: 201307

REACTIONS (4)
  - Necrosis [Fatal]
  - Incorrect route of drug administration [Fatal]
  - Neoplasm malignant [Fatal]
  - Thoracic operation [Unknown]
